FAERS Safety Report 5129947-8 (Version None)
Quarter: 2006Q4

REPORT INFORMATION
  Report Type: 
  Country: None (occurrence: None)
  Receive Date: 20061013
  Receipt Date: 20050926
  Transmission Date: 20070319
  Serious: Yes (Hospitalization)
  Sender: FDA-Public Use
  Company Number: GB200608006580

PATIENT
  Age: 58 Year
  Sex: Male
  Weight: 89 kg

DRUGS (7)
  1. CIALIS [Suspect]
     Indication: ERECTILE DYSFUNCTION
     Dosage: 20 MG ORAL ; 10 MG ORAL
     Route: 048
     Dates: start: 20030101, end: 20030101
  2. CIALIS [Suspect]
     Indication: ERECTILE DYSFUNCTION
     Dosage: 20 MG ORAL ; 10 MG ORAL
     Route: 048
     Dates: start: 20030101
  3. ATENOLOL [Concomitant]
  4. LANSOPRAZOLE [Concomitant]
  5. CLOPIDOGREL [Concomitant]
  6. PERINDOPRIL ERBUMINE [Concomitant]
  7. ATORVASTATIN CALCIUM [Concomitant]

REACTIONS (3)
  - CAROTID ARTERY STENOSIS [None]
  - EMBOLIC STROKE [None]
  - HEADACHE [None]
